FAERS Safety Report 7047288-9 (Version None)
Quarter: 2010Q4

REPORT INFORMATION
  Report Type: 
  Country: None (occurrence: None)
  Receive Date: 20101015
  Receipt Date: 20101001
  Transmission Date: 20110411
  Serious: Yes (Hospitalization)
  Sender: FDA-Public Use
  Company Number: PHHY2010US64746

PATIENT
  Sex: Female
  Weight: 57.5 kg

DRUGS (9)
  1. EXJADE [Suspect]
     Indication: HAEMATOPOIETIC NEOPLASM
     Dosage: 1000 MG, QD
     Route: 048
  2. EXJADE [Suspect]
     Indication: MYELODYSPLASTIC SYNDROME
  3. PROCRIT [Concomitant]
     Indication: MYELODYSPLASTIC SYNDROME
     Dosage: 60000 UNITS WEEKLY ON FRIDAY
  4. NEXIUM [Concomitant]
     Dosage: 40 MG, DAILY
     Route: 048
  5. LEVOTHYROXINE [Concomitant]
     Dosage: 0.075 MG, DAILY
     Route: 048
  6. ASPIRIN [Concomitant]
     Dosage: 1 DAILY
     Route: 048
  7. CALCIUM WITH VITAMIN D [Concomitant]
     Route: 048
  8. POTASSIUM CHLORIDE [Concomitant]
     Dosage: 20 MEQ, BID
     Route: 048
  9. RED BLOOD CELLS, CONCENTRATED [Concomitant]
     Dosage: 2 UNITS

REACTIONS (19)
  - BLOOD CHLORIDE DECREASED [None]
  - BLOOD CREATININE DECREASED [None]
  - BLOOD GLUCOSE INCREASED [None]
  - BLOOD PRESSURE DIASTOLIC DECREASED [None]
  - BLOOD UREA DECREASED [None]
  - C-REACTIVE PROTEIN INCREASED [None]
  - DIZZINESS [None]
  - ESCHERICHIA URINARY TRACT INFECTION [None]
  - FALL [None]
  - FLUID RETENTION [None]
  - HEART RATE INCREASED [None]
  - HIGH DENSITY LIPOPROTEIN DECREASED [None]
  - HYPONATRAEMIA [None]
  - MALAISE [None]
  - OEDEMA PERIPHERAL [None]
  - PALLOR [None]
  - PYREXIA [None]
  - TACHYCARDIA [None]
  - UNRESPONSIVE TO STIMULI [None]
